FAERS Safety Report 25774045 (Version 1)
Quarter: 2025Q3

REPORT INFORMATION
  Report Type: Spontaneous
  Country: US (occurrence: None)
  Receive Date: 20250905
  Receipt Date: 20250905
  Transmission Date: 20251020
  Serious: No
  Sender: FDA-CTU
  Company Number: None

PATIENT
  Age: 66 Year
  Sex: Male

DRUGS (1)
  1. AUSTEDO XR [Suspect]
     Active Substance: DEUTETRABENAZINE
     Dosage: FREQUENCY : DAILY;?
     Route: 048
     Dates: start: 20250113

REACTIONS (2)
  - Mood swings [None]
  - Emotional disorder [None]

NARRATIVE: CASE EVENT DATE: 20250115
